FAERS Safety Report 8604300-0 (Version None)
Quarter: 2012Q3

REPORT INFORMATION
  Report Type: 
  Country: None (occurrence: None)
  Receive Date: 20120807
  Receipt Date: 20120723
  Transmission Date: 20120928
  Serious: Yes (Other)
  Sender: FDA-Public Use
  Company Number: FK201202145

PATIENT
  Age: 42 Year
  Sex: Male

DRUGS (5)
  1. GENTAMYCIN (CENTAMUCIN) [Concomitant]
  2. VALACYCLOVIR [Concomitant]
  3. VANCOMYCIN [Suspect]
     Indication: PRODUCT USED FOR UNKNOWN INDICATION
     Dosage: UNKNOWN, ONE INJECTION AT EACH HEMODIALYSIS
  4. PIPERACILLIN AND TAZOBACTAM [Concomitant]
  5. CEFTRIAXONE [Concomitant]

REACTIONS (4)
  - HAEMATURIA [None]
  - HENOCH-SCHONLEIN PURPURA [None]
  - ARTHRALGIA [None]
  - NECROSIS [None]
